FAERS Safety Report 12863644 (Version 1)
Quarter: 2016Q4

REPORT INFORMATION
  Report Type: Report from Study
  Country: DE (occurrence: DE)
  Receive Date: 20161019
  Receipt Date: 20161019
  Transmission Date: 20170207
  Serious: Yes (Death, Hospitalization)
  Sender: FDA-Public Use
  Company Number: DE-INCYTE CORPORATION-2013IN002276

PATIENT
  Age: 75 Year
  Sex: Female
  Weight: 62 kg

DRUGS (15)
  1. DETRUSITOL [Concomitant]
     Active Substance: TOLTERODINE TARTRATE
     Dosage: 16 MG, QD
     Route: 065
  2. DOXY                               /00055701/ [Concomitant]
     Indication: EYE INFECTION
     Dosage: UNK
     Dates: start: 2011
  3. PANTOZOL [Concomitant]
     Active Substance: PANTOPRAZOLE SODIUM
     Indication: ABDOMINAL PAIN UPPER
     Dosage: 20 MG, PRN AS NEEDED
     Route: 065
     Dates: start: 2010, end: 20130503
  4. METOPROLOL SUCCINATE. [Concomitant]
     Active Substance: METOPROLOL SUCCINATE
     Indication: HYPERTENSION
     Dosage: 190 MG, DAILY
     Route: 065
     Dates: start: 20130327, end: 20130503
  5. INCB018424 [Suspect]
     Active Substance: RUXOLITINIB
     Indication: MYELOFIBROSIS
     Dosage: 20 MG, BID
     Route: 048
     Dates: start: 20121228
  6. DETRUSITOL [Concomitant]
     Active Substance: TOLTERODINE TARTRATE
     Indication: URGE INCONTINENCE
     Dosage: 8 MG, QD
     Route: 065
     Dates: start: 20121201
  7. DETRUSITOL [Concomitant]
     Active Substance: TOLTERODINE TARTRATE
     Dosage: 16 MG, DAILY
  8. TORASEMIDE [Concomitant]
     Active Substance: TORSEMIDE
     Indication: OEDEMA
     Dosage: 5 MG, DAILY
     Route: 065
     Dates: start: 201212, end: 20130917
  9. CLOPIDOGREL [Concomitant]
     Active Substance: CLOPIDOGREL BISULFATE
     Indication: THROMBOSIS
     Dosage: 75 MG, DAILY
     Route: 065
     Dates: start: 2008
  10. PANTOZOL [Concomitant]
     Active Substance: PANTOPRAZOLE SODIUM
     Indication: DYSPEPSIA
     Dosage: 20 MG, QD
     Route: 065
     Dates: start: 20130503
  11. ENALAPRIL [Concomitant]
     Active Substance: ENALAPRIL
     Indication: HYPERTENSION
     Dosage: 20 MG, DAILY
     Route: 065
     Dates: start: 201212
  12. GABAPENTIN. [Concomitant]
     Active Substance: GABAPENTIN
     Indication: NEURALGIA
     Dosage: 600 MG, DAILY
     Route: 065
     Dates: start: 2010
  13. NOVAMINSULFON [Concomitant]
     Active Substance: METAMIZOLE
     Indication: PAIN
     Dosage: 4 X 25 DROPS AS NEEDED
     Route: 065
     Dates: start: 2012
  14. LETROZOLE. [Concomitant]
     Active Substance: LETROZOLE
     Indication: BREAST CANCER
     Dosage: 2.5 MG, DAILY
     Route: 065
     Dates: start: 2010
  15. SERTRALINE [Concomitant]
     Active Substance: SERTRALINE HYDROCHLORIDE
     Indication: DEPRESSION
     Dosage: 100 MG, DAILY
     Route: 065
     Dates: start: 2009

REACTIONS (5)
  - Hypokalaemia [Not Recovered/Not Resolved]
  - Acute coronary syndrome [Fatal]
  - Cardiac arrest [Fatal]
  - Hypertension [Not Recovered/Not Resolved]
  - Urinary tract infection [Fatal]

NARRATIVE: CASE EVENT DATE: 20130918
